FAERS Safety Report 10029390 (Version 3)
Quarter: 2014Q2

REPORT INFORMATION
  Report Type: Report from Study
  Country: US (occurrence: US)
  Receive Date: 20140322
  Receipt Date: 20140401
  Transmission Date: 20141212
  Serious: No
  Sender: FDA-Public Use
  Company Number: PHEH2014US003253

PATIENT
  Age: 57 Year
  Sex: Female
  Weight: 88.89 kg

DRUGS (2)
  1. GILENYA [Suspect]
     Indication: MULTIPLE SCLEROSIS
     Dosage: 0.5 MG, QD
     Route: 048
     Dates: start: 20140203, end: 20140213
  2. BUPROPION [Concomitant]
     Indication: DEPRESSION
     Route: 048

REACTIONS (7)
  - Chest discomfort [Recovered/Resolved]
  - Fatigue [Unknown]
  - Malaise [Unknown]
  - Pain [Unknown]
  - Dyspnoea [Recovered/Resolved]
  - Headache [Unknown]
  - Back pain [Unknown]
